FAERS Safety Report 8353357-3 (Version None)
Quarter: 2012Q2

REPORT INFORMATION
  Report Type: 
  Country: None (occurrence: None)
  Receive Date: 20120511
  Receipt Date: 20120508
  Transmission Date: 20120825
  Serious: Yes (Other)
  Sender: FDA-Public Use
  Company Number: PHHY2012BR039760

PATIENT
  Sex: Female

DRUGS (1)
  1. DIOVAN HCT [Suspect]
     Dosage: 160 MG VAL AND 12.5 MG HYDRO

REACTIONS (1)
  - LUNG NEOPLASM MALIGNANT [None]
